FAERS Safety Report 20167432 (Version 1)
Quarter: 2021Q4

REPORT INFORMATION
  Report Type: Spontaneous
  Country: None (occurrence: GB)
  Receive Date: 20211209
  Receipt Date: 20211209
  Transmission Date: 20220303
  Serious: Yes (Hospitalization)
  Sender: FDA-Public Use
  Company Number: GB-Canton Laboratories, LLC-2122861

PATIENT
  Age: 20 Year
  Sex: Female

DRUGS (2)
  1. NAPROSYN [Suspect]
     Active Substance: NAPROXEN
     Indication: Pain
     Route: 065
  2. COMIRNATY [Suspect]
     Active Substance: TOZINAMERAN

REACTIONS (5)
  - Dyspnoea [Recovered/Resolved]
  - Back pain [Recovered/Resolved]
  - Chest pain [Recovered/Resolved]
  - Pericarditis [Recovered/Resolved]
  - Drug interaction [Recovered/Resolved]
